FAERS Safety Report 15752151 (Version 1)
Quarter: 2018Q4

REPORT INFORMATION
  Report Type: Spontaneous
  Country: US (occurrence: US)
  Receive Date: 20181221
  Receipt Date: 20181221
  Transmission Date: 20190205
  Serious: No
  Sender: FDA-Public Use
  Company Number: US-ENDO PHARMACEUTICALS INC-2018-042542

PATIENT

DRUGS (1)
  1. APLISOL [Suspect]
     Active Substance: TUBERCULIN PURIFIED PROTEIN DERIVATIVE
     Indication: MYCOBACTERIUM TUBERCULOSIS COMPLEX TEST
     Dosage: UNK UNK, UNKNOWN

REACTIONS (2)
  - False positive tuberculosis test [Unknown]
  - Product quality issue [Unknown]
